FAERS Safety Report 9547918 (Version 1)
Quarter: 2013Q3

REPORT INFORMATION
  Report Type: Spontaneous
  Country: FR (occurrence: FR)
  Receive Date: 20130924
  Receipt Date: 20130924
  Transmission Date: 20140515
  Serious: Yes (Hospitalization)
  Sender: FDA-Public Use
  Company Number: FR-SANOFI-AVENTIS-2013SA092099

PATIENT
  Age: 24 Year
  Sex: Male

DRUGS (6)
  1. KARDEGIC [Suspect]
     Indication: PRODUCT USED FOR UNKNOWN INDICATION
     Dosage: STRENGTH-160 MG
     Route: 048
     Dates: start: 200706, end: 20130831
  2. LOVENOX [Suspect]
     Indication: ANTICOAGULANT THERAPY
     Dosage: TREATMENT END DATE: AUG-2013?STRENGTH : 10000 IU/ML
     Route: 058
     Dates: start: 20130804
  3. PLAVIX [Suspect]
     Indication: ANTICOAGULANT THERAPY
     Dosage: STRENGTH-75 MG
     Route: 048
     Dates: start: 20130826, end: 20130831
  4. TRILEPTAL [Concomitant]
     Dosage: STRENGTH-150 MG
  5. EPITOMAX [Concomitant]
     Dosage: STRENGTH-25 MG
  6. ESOMEPRAZOLE [Concomitant]
     Dosage: STRENGTH-20 MG

REACTIONS (5)
  - Retroperitoneal haematoma [Recovering/Resolving]
  - Chest pain [Recovering/Resolving]
  - Cardiogenic shock [Recovering/Resolving]
  - Hypotension [Recovering/Resolving]
  - Haemoglobin decreased [Recovering/Resolving]
